FAERS Safety Report 16127588 (Version 7)
Quarter: 2020Q1

REPORT INFORMATION
  Report Type: Spontaneous
  Country: US (occurrence: US)
  Receive Date: 20190328
  Receipt Date: 20200303
  Transmission Date: 20200409
  Serious: No
  Sender: FDA-Public Use
  Company Number: US-PFIZER INC-2018342731

PATIENT
  Age: 11 Year
  Sex: Male

DRUGS (5)
  1. GENOTROPIN [Suspect]
     Active Substance: SOMATROPIN
     Indication: BLOOD GROWTH HORMONE
     Dosage: 0.6 MG, DAILY
  2. GENOTROPIN [Suspect]
     Active Substance: SOMATROPIN
     Indication: STEROID THERAPY
  3. GENOTROPIN [Suspect]
     Active Substance: SOMATROPIN
     Indication: RADIOTHERAPY
     Dosage: 0.8 MG, DAILY
  4. GENOTROPIN [Suspect]
     Active Substance: SOMATROPIN
     Indication: MEDULLOBLASTOMA
     Dosage: 0.6 MG, DAILY
     Dates: start: 201803
  5. GENOTROPIN [Suspect]
     Active Substance: SOMATROPIN
     Indication: CHEMOTHERAPY
     Dosage: 1 MG, DAILY

REACTIONS (3)
  - Insulin-like growth factor decreased [Unknown]
  - Headache [Not Recovered/Not Resolved]
  - Vomiting [Unknown]
